FAERS Safety Report 16149973 (Version 1)
Quarter: 2019Q2

REPORT INFORMATION
  Report Type: Spontaneous
  Country: GB (occurrence: GB)
  Receive Date: 20190402
  Receipt Date: 20190402
  Transmission Date: 20190711
  Serious: Yes (Other)
  Sender: FDA-Public Use
  Company Number: PHHY2019GB071493

PATIENT
  Age: 78 Year
  Sex: Male

DRUGS (4)
  1. PHENYLEPHRINE HYDROCHLORIDE. [Suspect]
     Active Substance: PHENYLEPHRINE HYDROCHLORIDE
     Indication: PUPIL DILATION PROCEDURE
  2. WARFARIN [Suspect]
     Active Substance: WARFARIN
     Indication: HAEMORRHAGE PROPHYLAXIS
     Dosage: UNK
     Route: 048
  3. PHENYLEPHRINE HYDROCHLORIDE. [Suspect]
     Active Substance: PHENYLEPHRINE HYDROCHLORIDE
     Indication: HAEMORRHAGE
     Dosage: UNK
     Route: 031
  4. TAMSULOSIN HYDROCHLORIDE. [Suspect]
     Active Substance: TAMSULOSIN HYDROCHLORIDE
     Indication: HAEMORRHAGE PROPHYLAXIS
     Dosage: UNK
     Route: 048

REACTIONS (3)
  - Therapeutic response unexpected [Unknown]
  - Iris haemorrhage [Recovered/Resolved]
  - Off label use [Unknown]
